FAERS Safety Report 6568961-2 (Version None)
Quarter: 2010Q1

REPORT INFORMATION
  Report Type: 
  Country: None (occurrence: None)
  Receive Date: 20100201
  Receipt Date: 20100201
  Transmission Date: 20100710
  Serious: Yes (Other)
  Sender: FDA-Public Use
  Company Number: None

PATIENT
  Sex: Female
  Weight: 87 kg

DRUGS (1)
  1. ROCURONIUM BROMIDE [Suspect]
     Indication: RELAXATION THERAPY
     Dosage: 50/30/10MG 1H IV
     Route: 042
     Dates: start: 20100129

REACTIONS (1)
  - NEUROMUSCULAR BLOCK PROLONGED [None]
